FAERS Safety Report 4410698-X (Version None)
Quarter: 2004Q3

REPORT INFORMATION
  Report Type: 
  Country: None (occurrence: None)
  Receive Date: 20040728
  Receipt Date: 20040728
  Transmission Date: 20050211
  Serious: Yes (Life-Threatening, Hospitalization)
  Sender: FDA-Public Use
  Company Number: None

PATIENT
  Age: 81 Year
  Sex: Female

DRUGS (10)
  1. VISIPAQUE [Suspect]
     Dosage: X 1
     Dates: start: 20040304
  2. COMBIVENT [Concomitant]
  3. NORVASC [Concomitant]
  4. ASPIRIN [Concomitant]
  5. COREG [Concomitant]
  6. POTASSIUM [Concomitant]
  7. LASIX [Concomitant]
  8. GLYBURIDE [Concomitant]
  9. DIOVAN [Concomitant]
  10. AMBIEN [Concomitant]

REACTIONS (2)
  - HAEMODIALYSIS [None]
  - RENAL FAILURE CHRONIC [None]
